FAERS Safety Report 9154017 (Version 1)
Quarter: 2013Q1

REPORT INFORMATION
  Report Type: Spontaneous
  Country: US (occurrence: None)
  Receive Date: 20130308
  Receipt Date: 20130308
  Transmission Date: 20140127
  Serious: Yes (Life-Threatening, Hospitalization)
  Sender: FDA-Public Use
  Company Number: None

PATIENT
  Age: 23 Year
  Sex: Female
  Weight: 56.7 kg

DRUGS (1)
  1. CYTOTEC [Suspect]
     Dates: start: 20120806, end: 20120807

REACTIONS (2)
  - Postpartum haemorrhage [None]
  - Exposure during pregnancy [None]
